FAERS Safety Report 6667484-X (Version None)
Quarter: 2010Q2

REPORT INFORMATION
  Report Type: 
  Country: None (occurrence: None)
  Receive Date: 20100405
  Receipt Date: 20100319
  Transmission Date: 20101027
  Serious: Yes (Hospitalization)
  Sender: FDA-Public Use
  Company Number: DE-BAYER-200941030GPV

PATIENT
  Age: 74 Year
  Sex: Female
  Weight: 58 kg

DRUGS (17)
  1. CAMPATH [Suspect]
     Indication: CHRONIC LYMPHOCYTIC LEUKAEMIA
     Route: 058
     Dates: start: 20091211
  2. CAMPATH [Suspect]
     Route: 058
     Dates: start: 20091005, end: 20091122
  3. PEGFILGRASTIM [Suspect]
     Indication: CHRONIC LYMPHOCYTIC LEUKAEMIA
     Route: 058
     Dates: start: 20091104
  4. PEGFILGRASTIM [Suspect]
     Route: 058
     Dates: start: 20091118
  5. PEGFILGRASTIM [Suspect]
     Route: 058
     Dates: start: 20091021
  6. DEXAMETHASONE TAB [Suspect]
     Indication: CHRONIC LYMPHOCYTIC LEUKAEMIA
     Route: 048
     Dates: start: 20091022, end: 20091025
  7. DEXAMETHASONE TAB [Suspect]
     Route: 048
     Dates: start: 20091104, end: 20091107
  8. DEXAMETHASONE TAB [Suspect]
     Route: 048
     Dates: start: 20091118, end: 20091121
  9. PANTOPRAZOLE SODIUM [Concomitant]
  10. METOPROLOL SUCCINATE [Concomitant]
     Indication: HYPERTENSION
     Dosage: TOTAL DAILY DOSE: 1 DF  UNIT DOSE: 47.5 MG
     Route: 048
  11. CALCIMAGON D3 [Concomitant]
     Dosage: TOTAL DAILY DOSE: 2 DF
     Route: 048
  12. COTRIM [Concomitant]
     Indication: INFECTION PROPHYLAXIS
     Dosage: TOTAL DAILY DOSE: 960 MG
     Route: 048
  13. ACIC [Concomitant]
     Indication: ANTIVIRAL PROPHYLAXIS
     Dosage: TOTAL DAILY DOSE: 1600 MG
     Route: 048
     Dates: start: 20091111
  14. ACIC [Concomitant]
     Dosage: TOTAL DAILY DOSE: 1600 MG
     Route: 048
  15. ENOXAPARIN SODIUM [Concomitant]
     Indication: DEEP VEIN THROMBOSIS
     Dosage: ADMINISTRATION ACCORDING TO PLATELET COUNT
     Route: 058
  16. TYRANAJOD [Concomitant]
     Indication: HYPERTHYROIDISM
  17. ASPIRIN [Concomitant]
     Indication: ATRIAL FIBRILLATION

REACTIONS (8)
  - COUGH [None]
  - DIZZINESS [None]
  - INFECTION [None]
  - PYREXIA [None]
  - RHINORRHOEA [None]
  - SYNCOPE [None]
  - TACHYARRHYTHMIA [None]
  - URINARY TRACT INFECTION [None]
